FAERS Safety Report 17628964 (Version 1)
Quarter: 2020Q2

REPORT INFORMATION
  Report Type: Spontaneous
  Country: US (occurrence: US)
  Receive Date: 20200406
  Receipt Date: 20200406
  Transmission Date: 20200713
  Serious: Yes (Hospitalization, Other)
  Sender: FDA-Public Use
  Company Number: US-LUPIN PHARMACEUTICALS INC.-2020-01587

PATIENT
  Age: 80 Year
  Sex: Male
  Weight: 83 kg

DRUGS (4)
  1. MORPHINE [Suspect]
     Active Substance: MORPHINE
     Indication: POST LAMINECTOMY SYNDROME
     Dosage: 0.2 MILLIGRAM, BID
     Route: 037
  2. MORPHINE [Suspect]
     Active Substance: MORPHINE
     Dosage: 1.9 MILLIGRAM, QD
     Route: 037
  3. OXYCODONE HYDROCHLORIDE TABLETS [Suspect]
     Active Substance: OXYCODONE HYDROCHLORIDE
     Dosage: UNK
     Route: 065
  4. OXYCODONE HYDROCHLORIDE TABLETS [Suspect]
     Active Substance: OXYCODONE HYDROCHLORIDE
     Indication: POST LAMINECTOMY SYNDROME
     Dosage: 5 MILLIGRAM, QID (ONE 5 MG TABLET EVERY 6 HOURS)
     Route: 065

REACTIONS (5)
  - Abdominal pain [Recovering/Resolving]
  - Somnolence [Unknown]
  - Drug intolerance [Unknown]
  - Constipation [Recovering/Resolving]
  - Functional gastrointestinal disorder [Recovering/Resolving]
